FAERS Safety Report 12428018 (Version 1)
Quarter: 2016Q2

REPORT INFORMATION
  Report Type: Spontaneous
  Country: PT (occurrence: PT)
  Receive Date: 20160602
  Receipt Date: 20160602
  Transmission Date: 20160815
  Serious: Yes (Other)
  Sender: FDA-Public Use
  Company Number: PT-BAYER-2016-087539

PATIENT
  Age: 64 Year
  Sex: Male

DRUGS (4)
  1. PREDNISOLONE. [Concomitant]
     Active Substance: PREDNISOLONE
  2. XOFIGO [Suspect]
     Active Substance: RADIUM RA-223 DICHLORIDE
     Indication: PROSTATE CANCER METASTATIC
     Dosage: UNK
     Route: 042
     Dates: start: 2015, end: 2015
  3. DENOSUMAB [Concomitant]
     Active Substance: DENOSUMAB
  4. XOFIGO [Suspect]
     Active Substance: RADIUM RA-223 DICHLORIDE
     Indication: PROSTATE CANCER METASTATIC
     Dosage: UNK
     Route: 042
     Dates: start: 20151029, end: 20151029

REACTIONS (3)
  - Metastases to lung [None]
  - Metastases to adrenals [None]
  - Pancytopenia [None]

NARRATIVE: CASE EVENT DATE: 2015
